FAERS Safety Report 21369796 (Version 1)
Quarter: 2022Q3

REPORT INFORMATION
  Report Type: Spontaneous
  Country: CN (occurrence: CN)
  Receive Date: 20220923
  Receipt Date: 20220923
  Transmission Date: 20221027
  Serious: Yes (Other)
  Sender: FDA-Public Use
  Company Number: CN-PFIZER INC-PV202200068294

PATIENT
  Age: 10 Month
  Sex: Male
  Weight: 10 kg

DRUGS (3)
  1. AZITHROMYCIN [Suspect]
     Active Substance: AZITHROMYCIN
     Indication: Upper respiratory tract infection
     Dosage: 0.1 G, 1X/DAY
     Route: 048
     Dates: start: 20220916, end: 20220919
  2. XIAO ER JIN QIAO [Concomitant]
     Indication: Upper respiratory tract infection
     Dosage: 3.75 G, 3X/DAY
     Route: 048
     Dates: start: 20220916, end: 20220919
  3. POTASSIUM SODIUM DEHYDROANDROANDROGRAPHOLIDE SUCCINATE [Concomitant]
     Indication: Upper respiratory tract infection
     Dosage: 160 MG, 1X/DAY
     Route: 041
     Dates: start: 20220916, end: 20220919

REACTIONS (2)
  - Infantile spitting up [Recovered/Resolved]
  - Retching [Recovered/Resolved]

NARRATIVE: CASE EVENT DATE: 20220917
